FAERS Safety Report 9785040 (Version 1)
Quarter: 2013Q4

REPORT INFORMATION
  Report Type: Report from Study
  Country: US (occurrence: US)
  Receive Date: 20131227
  Receipt Date: 20131227
  Transmission Date: 20140711
  Serious: Yes (Life-Threatening, Hospitalization)
  Sender: FDA-Public Use
  Company Number: US-ROCHE-1322909

PATIENT
  Age: 68 Year
  Sex: Female
  Weight: 66.74 kg

DRUGS (2)
  1. ACTEMRA [Suspect]
     Indication: RHEUMATOID ARTHRITIS
     Route: 042
     Dates: end: 201303
  2. PREDNISONE [Concomitant]
     Indication: RHEUMATOID ARTHRITIS
     Dosage: FREQUENCY : DAILY
     Route: 048

REACTIONS (3)
  - Escherichia sepsis [Recovered/Resolved]
  - Myocardial infarction [Recovered/Resolved]
  - Immune system disorder [Unknown]
